FAERS Safety Report 21287225 (Version 2)
Quarter: 2022Q4

REPORT INFORMATION
  Report Type: Spontaneous
  Country: CA (occurrence: CA)
  Receive Date: 20220902
  Receipt Date: 20221007
  Transmission Date: 20230113
  Serious: Yes (Death, Other)
  Sender: FDA-Public Use
  Company Number: CA-PFIZER INC-2021664323

PATIENT
  Age: 81 Year
  Sex: Male
  Weight: 64.41 kg

DRUGS (15)
  1. RUXIENCE [Suspect]
     Active Substance: RITUXIMAB-PVVR
     Indication: Rheumatoid arthritis
     Dosage: 1000 MG DAY 1 AND DAY 15
     Route: 042
     Dates: start: 20210601
  2. RUXIENCE [Suspect]
     Active Substance: RITUXIMAB-PVVR
     Dosage: 1000 MG DAY 1 AND DAY 15
     Route: 042
     Dates: start: 20210601, end: 20210615
  3. RUXIENCE [Suspect]
     Active Substance: RITUXIMAB-PVVR
     Dosage: 1000 MG DAY 1 AND DAY 15
     Route: 042
     Dates: start: 20210615
  4. RUXIENCE [Suspect]
     Active Substance: RITUXIMAB-PVVR
     Dosage: 1000 MG DAY 1 AND DAY 15
     Route: 042
     Dates: start: 20220208, end: 20220222
  5. RUXIENCE [Suspect]
     Active Substance: RITUXIMAB-PVVR
     Dosage: 1000 MG DAY 1 AND DAY 15
     Route: 042
     Dates: start: 20220222
  6. ACETAMINOPHEN [Concomitant]
     Active Substance: ACETAMINOPHEN
     Indication: Premedication
     Dosage: 650 MG
     Dates: start: 20210601, end: 20210601
  7. ACETAMINOPHEN [Concomitant]
     Active Substance: ACETAMINOPHEN
     Dosage: 650 MG
     Dates: start: 20210615, end: 20210615
  8. ATENOLOL [Concomitant]
     Active Substance: ATENOLOL
     Dosage: 1 DF DOSAGE NOT AVAILABLE
     Route: 065
  9. AVAPRO [Concomitant]
     Active Substance: IRBESARTAN
     Dosage: 1 DF DOSAGE NOT AVAILABLE
     Route: 065
  10. CLONAZEPAM [Concomitant]
     Active Substance: CLONAZEPAM
     Dosage: 1 DF DOSAGE NOT AVAILABLE
     Route: 065
  11. NIFEDIPINE [Concomitant]
     Active Substance: NIFEDIPINE
     Dosage: 1 DF DOSAGE NOT AVAILABLE
     Route: 065
  12. PANTOPRAZOLE SODIUM [Concomitant]
     Active Substance: PANTOPRAZOLE SODIUM
     Dosage: 1 DF DOSAGE NOT AVAILABLE
     Route: 065
  13. PLAQUENIL [Concomitant]
     Active Substance: HYDROXYCHLOROQUINE SULFATE
     Dosage: 400 MG, 1X/DAY
     Route: 065
  14. PLAVIX [Concomitant]
     Active Substance: CLOPIDOGREL BISULFATE
     Dosage: 1 DF DOSAGE NOT AVAILABLE
     Route: 065
  15. PREDNISONE [Concomitant]
     Active Substance: PREDNISONE
     Dosage: 5 MG, 1X/DAY
     Route: 065

REACTIONS (14)
  - Death [Fatal]
  - COVID-19 [Fatal]
  - Pneumothorax [Fatal]
  - Pulmonary oedema [Fatal]
  - Pneumonia [Not Recovered/Not Resolved]
  - Off label use [Unknown]
  - Product use issue [Unknown]
  - Back pain [Not Recovered/Not Resolved]
  - Fatigue [Unknown]
  - Joint range of motion decreased [Not Recovered/Not Resolved]
  - Joint swelling [Unknown]
  - Osteoarthritis [Not Recovered/Not Resolved]
  - Pain [Not Recovered/Not Resolved]
  - Physical deconditioning [Unknown]

NARRATIVE: CASE EVENT DATE: 20210601
